FAERS Safety Report 10098008 (Version 3)
Quarter: 2014Q3

REPORT INFORMATION
  Report Type: Spontaneous
  Country: US (occurrence: None)
  Receive Date: 20140421
  Receipt Date: 20140804
  Transmission Date: 20150326
  Serious: Yes (Hospitalization)
  Sender: FDA-Public Use
  Company Number: 1224850-2014-0002

PATIENT
  Age: 63 Year
  Sex: Male

DRUGS (8)
  1. PRILOSEC [Concomitant]
     Active Substance: OMEPRAZOLE MAGNESIUM
  2. PHOSLO [Suspect]
     Active Substance: CALCIUM ACETATE
  3. LIBERTY CYCLER CASSETTE [Concomitant]
     Active Substance: DEVICE
  4. PERCOCET [Concomitant]
     Active Substance: ACETAMINOPHEN\OXYCODONE HYDROCHLORIDE
  5. VITAMIN D [Concomitant]
     Active Substance: CHOLECALCIFEROL
  6. LANTUS [Concomitant]
     Active Substance: INSULIN GLARGINE
  7. MEGACE [Concomitant]
     Active Substance: MEGESTROL ACETATE
  8. SENSIPAR [Concomitant]
     Active Substance: CINACALCET HYDROCHLORIDE

REACTIONS (17)
  - Ischaemic cardiomyopathy [None]
  - Acute myocardial infarction [None]
  - Hypokalaemia [None]
  - Nausea [None]
  - Muscle spasms [None]
  - Systemic inflammatory response syndrome [None]
  - Pleural effusion [None]
  - Hypomagnesaemia [None]
  - Coronary artery occlusion [None]
  - Bone contusion [None]
  - Contusion [None]
  - Hyponatraemia [None]
  - Hypocalcaemia [None]
  - Fall [None]
  - Peritonitis bacterial [None]
  - Coronary artery disease [None]
  - Coronary artery stenosis [None]

NARRATIVE: CASE EVENT DATE: 20140120
